FAERS Safety Report 7793122-9 (Version None)
Quarter: 2011Q4

REPORT INFORMATION
  Report Type: 
  Country: None (occurrence: None)
  Receive Date: 20111003
  Receipt Date: 20110930
  Transmission Date: 20120403
  Serious: Yes (Death)
  Sender: FDA-Public Use
  Company Number: CHPA2011US13388

PATIENT
  Age: 66 Year
  Sex: Female

DRUGS (1)
  1. VOLTAREN [Suspect]
     Dosage: UNK, UNK
     Route: 061

REACTIONS (4)
  - PHARYNGITIS STREPTOCOCCAL [None]
  - NASOPHARYNGITIS [None]
  - MYOCARDIAL INFARCTION [None]
  - MALAISE [None]
